FAERS Safety Report 5238428-2 (Version None)
Quarter: 2007Q1

REPORT INFORMATION
  Report Type: 
  Country: None (occurrence: None)
  Receive Date: 20070215
  Receipt Date: 20070213
  Transmission Date: 20070707
  Serious: Yes (Death)
  Sender: FDA-Public Use
  Company Number: 2007AP00651

PATIENT
  Age: 28056 Day
  Sex: Male
  Weight: 45 kg

DRUGS (12)
  1. IRESSA [Suspect]
     Indication: LUNG ADENOCARCINOMA
     Route: 048
     Dates: start: 20070122, end: 20070124
  2. IRESSA [Suspect]
     Indication: NON-SMALL CELL LUNG CANCER RECURRENT
     Route: 048
     Dates: start: 20070122, end: 20070124
  3. FENTANYL [Concomitant]
     Indication: CANCER PAIN
     Route: 041
     Dates: start: 20070116, end: 20070126
  4. DIGOSIN [Concomitant]
     Indication: ATRIAL FIBRILLATION
     Route: 048
     Dates: start: 20070124, end: 20070125
  5. ROHYPNOL [Concomitant]
     Indication: INSOMNIA
     Route: 048
     Dates: start: 20070122, end: 20070124
  6. MYSLEE [Concomitant]
     Indication: INSOMNIA
     Route: 048
     Dates: start: 20070122, end: 20070124
  7. LASIX [Concomitant]
  8. ZOMETA [Concomitant]
     Indication: METASTASES TO BONE
     Route: 042
     Dates: start: 20061225, end: 20070122
  9. ROPION [Concomitant]
     Indication: CANCER PAIN
     Route: 042
     Dates: start: 20070111, end: 20070126
  10. FOY [Concomitant]
     Indication: DISSEMINATED INTRAVASCULAR COAGULATION
     Route: 042
     Dates: start: 20070123, end: 20070126
  11. KAKODIN D [Concomitant]
     Indication: SHOCK
     Route: 041
     Dates: start: 20070124, end: 20070126
  12. RADIOTHERAPY [Concomitant]
     Dosage: 4 GY
     Dates: start: 20061228, end: 20061228

REACTIONS (4)
  - ACINETOBACTER INFECTION [None]
  - KLEBSIELLA INFECTION [None]
  - METASTASES TO SPINE [None]
  - PNEUMONIA [None]
